FAERS Safety Report 5240846-3 (Version None)
Quarter: 2007Q1

REPORT INFORMATION
  Report Type: 
  Country: None (occurrence: None)
  Receive Date: 20061201
  Receipt Date: 20060814
  Transmission Date: 20070707
  Serious: No
  Sender: FDA-Public Use
  Company Number: 2006PV020846

PATIENT
  Sex: Female

DRUGS (9)
  1. BYETTA [Suspect]
     Indication: DIABETES MELLITUS NON-INSULIN-DEPENDENT
     Dosage: 10 UG;BID;SC
     Route: 058
     Dates: start: 20060801
  2. ACTOS [Concomitant]
  3. LANTUS [Concomitant]
  4. GLUCOPHAGE [Concomitant]
  5. FLUOXETINE ^MEPHA^ [Concomitant]
  6. LOPRESSOR [Concomitant]
  7. SORTIS ^PARKE DAVIS^ [Concomitant]
  8. ASPIRIN [Concomitant]
  9. .. [Concomitant]

REACTIONS (3)
  - DECREASED APPETITE [None]
  - NAUSEA [None]
  - WEIGHT DECREASED [None]
